FAERS Safety Report 6657988-8 (Version None)
Quarter: 2010Q1

REPORT INFORMATION
  Report Type: 
  Country: None (occurrence: None)
  Receive Date: 20100330
  Receipt Date: 20100317
  Transmission Date: 20100710
  Serious: Yes (Other)
  Sender: FDA-Public Use
  Company Number: US-PFIZER INC-2010035311

PATIENT
  Age: 63 Year
  Sex: Male

DRUGS (2)
  1. CLINDAMYCIN PHOSPHATE [Suspect]
     Indication: BABESIOSIS
     Dosage: 900 MG, 3X/DAY
     Route: 042
     Dates: start: 20080113, end: 20080115
  2. QUININE [Suspect]
     Indication: BABESIOSIS
     Dosage: 650 MG, 3X/DAY
     Route: 048
     Dates: start: 20080113, end: 20080115

REACTIONS (1)
  - DEAFNESS [None]
